FAERS Safety Report 7313620-1 (Version None)
Quarter: 2011Q1

REPORT INFORMATION
  Report Type: 
  Country: None (occurrence: None)
  Receive Date: 20110225
  Receipt Date: 20110223
  Transmission Date: 20110831
  Serious: Yes (Death)
  Sender: FDA-Public Use
  Company Number: US-B.I. PHARMACEUTICALS,INC./RIDGEFIELD-2011-BP-04929BP

PATIENT
  Sex: Female

DRUGS (9)
  1. LIPITOR [Concomitant]
     Indication: BLOOD CHOLESTEROL INCREASED
     Dates: end: 20110216
  2. SPIRIVA [Suspect]
     Indication: CHRONIC OBSTRUCTIVE PULMONARY DISEASE
     Dosage: 18 MCG
     Route: 055
     Dates: start: 20101101, end: 20110210
  3. ALDACTONE [Concomitant]
     Dates: end: 20110216
  4. CAPTOPRIL [Concomitant]
     Indication: HYPERTENSION
     Dates: end: 20110216
  5. PLAVIX [Concomitant]
     Indication: PROPHYLAXIS
     Dates: end: 20110216
  6. LEXAPRO [Concomitant]
     Indication: ANXIETY
     Dates: end: 20110216
  7. TOPROL-XL [Concomitant]
     Indication: HYPERTENSION
     Dates: end: 20110216
  8. ARICEPT [Concomitant]
     Indication: DEMENTIA
     Dates: end: 20110216
  9. LASIX [Concomitant]
     Dates: end: 20110216

REACTIONS (1)
  - CARDIAC FAILURE [None]
